FAERS Safety Report 23500286 (Version 1)
Quarter: 2024Q1

REPORT INFORMATION
  Report Type: Spontaneous
  Country: BR (occurrence: BR)
  Receive Date: 20240208
  Receipt Date: 20240208
  Transmission Date: 20240409
  Serious: Yes (Other)
  Sender: FDA-Public Use
  Company Number: BR-BAXTER-2024BAX012420

PATIENT
  Sex: Female

DRUGS (2)
  1. IRON [Suspect]
     Active Substance: IRON
     Dosage: 2 AMPOULES DILUTED IN 500 ML OF 0.9% SALINE SOLUTION IN ONE HOUR
     Route: 042
  2. SODIUM CHLORIDE [Suspect]
     Active Substance: SODIUM CHLORIDE
     Indication: Medication dilution
     Dosage: 500 ML OF 0.9% SALINE SOLUTION USED TO DILUTE 2 AMPOULES OF SUCROFER IN ONE HOUR
     Route: 042

REACTIONS (4)
  - Hyperaemia [Recovered/Resolved]
  - Papule [Recovered/Resolved]
  - Oedema peripheral [Recovered/Resolved]
  - Pruritus [Recovered/Resolved]

NARRATIVE: CASE EVENT DATE: 20240122
